FAERS Safety Report 11194222 (Version 2)
Quarter: 2015Q3

REPORT INFORMATION
  Report Type: Other
  Country: DE (occurrence: JP)
  Receive Date: 20150616
  Receipt Date: 20150804
  Transmission Date: 20151125
  Serious: Yes (Hospitalization)
  Sender: FDA-Public Use
  Company Number: JP-FRI-1000077356

PATIENT
  Age: 79 Year
  Sex: Male

DRUGS (1)
  1. MEMANTINE. [Suspect]
     Active Substance: MEMANTINE
     Route: 065

REACTIONS (1)
  - Dysphagia [Recovered/Resolved]
